FAERS Safety Report 18181413 (Version 1)
Quarter: 2020Q3

REPORT INFORMATION
  Report Type: Spontaneous
  Country: CN (occurrence: CN)
  Receive Date: 20200821
  Receipt Date: 20200821
  Transmission Date: 20201103
  Serious: Yes (Other)
  Sender: FDA-Public Use
  Company Number: CN-PFIZER INC-2020322807

PATIENT
  Age: 28 Year
  Sex: Male
  Weight: 65 kg

DRUGS (2)
  1. CEFOPERAZONE SODIUM [Suspect]
     Active Substance: CEFOPERAZONE SODIUM
     Indication: ANTIINFLAMMATORY THERAPY
     Dosage: 3 G, 1X/DAY
     Route: 041
     Dates: start: 20200728, end: 20200728
  2. SODIUM CHLORIDE. [Concomitant]
     Active Substance: SODIUM CHLORIDE
     Indication: VEHICLE SOLUTION USE
     Dosage: 200 ML, 1X/DAY
     Route: 041
     Dates: start: 20200728, end: 20200728

REACTIONS (4)
  - Cyanosis [Recovering/Resolving]
  - Hypersensitivity [Recovering/Resolving]
  - Lip oedema [Recovering/Resolving]
  - Lip swelling [Recovering/Resolving]

NARRATIVE: CASE EVENT DATE: 20200728
